FAERS Safety Report 8241553-5 (Version None)
Quarter: 2012Q1

REPORT INFORMATION
  Report Type: 
  Country: None (occurrence: None)
  Receive Date: 20120328
  Receipt Date: 20120105
  Transmission Date: 20120608
  Serious: No
  Sender: FDA-Public Use
  Company Number: US-COVIDIEN/TYCO HEALTHCARE/MALLINCKRODT-T201200276

PATIENT
  Sex: Male
  Weight: 108.84 kg

DRUGS (13)
  1. TESTOSTERONE [Concomitant]
     Indication: PAIN
     Dosage: INJECTION, EVERY 2 WEEKS
  2. CITALOPRAM HYDROBROMIDE [Concomitant]
     Dosage: UNK
  3. WELLBUTRIN [Concomitant]
     Dosage: 300 UNK, QD
  4. PANTOPRAZOLE [Concomitant]
     Dosage: UNK
  5. GABAPENTIN [Concomitant]
     Indication: PAIN
     Dosage: 600 MG, QID
  6. PROVIGIL [Concomitant]
     Dosage: UNK
  7. SYNTHROID [Concomitant]
     Dosage: UNK
  8. KLONOPIN [Concomitant]
     Indication: INSOMNIA
     Dosage: UNK
  9. METHADONE HCL [Suspect]
     Indication: PAIN
     Dosage: 10 MG, 4-5 TABLETS PER DAY
     Route: 048
     Dates: start: 20070101
  10. OXYCODONE HCL [Suspect]
     Indication: PAIN
     Dosage: 15 MG, TID
     Route: 048
     Dates: start: 20070101
  11. FENTANYL [Concomitant]
     Indication: PAIN
     Dosage: 100 UG/HR, EVERY 48 HRS
     Route: 062
  12. ZYPREXA [Concomitant]
     Indication: INSOMNIA
     Dosage: UNK, PRN
  13. MIRTAZAPINE [Concomitant]
     Indication: INSOMNIA
     Dosage: UNK

REACTIONS (3)
  - HEADACHE [None]
  - DISORIENTATION [None]
  - WITHDRAWAL SYNDROME [None]
